FAERS Safety Report 5498882-8 (Version None)
Quarter: 2007Q4

REPORT INFORMATION
  Report Type: 
  Country: None (occurrence: None)
  Receive Date: 20071026
  Receipt Date: 20070726
  Transmission Date: 20080405
  Serious: No
  Sender: FDA-Public Use
  Company Number: A0667419A

PATIENT
  Sex: Female

DRUGS (1)
  1. ADVAIR DISKUS 100/50 [Suspect]

REACTIONS (8)
  - BREATH ODOUR [None]
  - COUGH [None]
  - DRUG INEFFECTIVE [None]
  - DYSPHONIA [None]
  - FATIGUE [None]
  - ILL-DEFINED DISORDER [None]
  - THROAT IRRITATION [None]
  - TONSILLAR DISORDER [None]
